FAERS Safety Report 6337842-1 (Version None)
Quarter: 2009Q3

REPORT INFORMATION
  Report Type: 
  Country: None (occurrence: None)
  Receive Date: 20090902
  Receipt Date: 20090828
  Transmission Date: 20100115
  Serious: Yes (Hospitalization)
  Sender: FDA-Public Use
  Company Number: A0805352A

PATIENT
  Age: 57 Year
  Sex: Male

DRUGS (2)
  1. TOPOTECAN [Suspect]
     Indication: NON-SMALL CELL LUNG CANCER
     Dosage: 7.72MG CYCLIC
     Route: 042
  2. BEVACIZUMAB [Suspect]
     Indication: NON-SMALL CELL LUNG CANCER
     Dosage: 848MG CYCLIC
     Route: 042

REACTIONS (1)
  - MUSCULOSKELETAL CHEST PAIN [None]
